FAERS Safety Report 8275819-X (Version None)
Quarter: 2012Q2

REPORT INFORMATION
  Report Type: 
  Country: None (occurrence: None)
  Receive Date: 20120410
  Receipt Date: 20120410
  Transmission Date: 20120825
  Serious: Yes (Other)
  Sender: FDA-Public Use
  Company Number: None

PATIENT
  Age: 55 Year
  Sex: Female
  Weight: 81 kg

DRUGS (3)
  1. XYLOCAINE HCL 0.8% W/ EPINEPHRINE 1-200,000 [Suspect]
     Indication: VITRECTOMY
     Dosage: 5ML X 1
     Dates: start: 20120301
  2. XYLOCAINE HCL 0.8% W/ EPINEPHRINE 1-200,000 [Suspect]
     Indication: CATARACT OPERATION
     Dosage: 5ML X 1
     Dates: start: 20120301
  3. XYLOCAINE HCL 0.8% W/ EPINEPHRINE 1-200,000 [Suspect]
     Indication: NERVE BLOCK
     Dosage: 5ML X 1
     Dates: start: 20120301

REACTIONS (1)
  - DRUG INEFFECTIVE [None]
